FAERS Safety Report 13570888 (Version 1)
Quarter: 2017Q2

REPORT INFORMATION
  Report Type: Spontaneous
  Country: FR (occurrence: FR)
  Receive Date: 20170523
  Receipt Date: 20170523
  Transmission Date: 20170830
  Serious: Yes (Other)
  Sender: FDA-Public Use
  Company Number: FR-BRISTOL-MYERS SQUIBB COMPANY-BMS-2017-042395

PATIENT
  Age: 46 Year
  Sex: Male

DRUGS (4)
  1. CYTARABINE KABI [Suspect]
     Active Substance: CYTARABINE
     Indication: LYMPHOMA
     Dosage: 330 MG, BID
     Route: 042
     Dates: start: 20160101, end: 20160104
  2. BICNU [Suspect]
     Active Substance: CARMUSTINE
     Indication: LYMPHOMA
     Dosage: 490 MG, UNK
     Route: 042
     Dates: start: 20151231
  3. ALKERAN [Suspect]
     Active Substance: MELPHALAN
     Indication: LYMPHOMA
     Dosage: 230 MG, UNK
     Route: 042
     Dates: start: 20160105
  4. ETOPOPHOS [Suspect]
     Active Substance: ETOPOSIDE PHOSPHATE
     Indication: LYMPHOMA
     Dosage: 165 MG, BID
     Route: 042
     Dates: start: 20160101, end: 20160104

REACTIONS (4)
  - Lung disorder [Recovered/Resolved]
  - Diarrhoea [Recovered/Resolved]
  - Transplant [Unknown]
  - Agranulocytosis [Recovered/Resolved]

NARRATIVE: CASE EVENT DATE: 20160106
